FAERS Safety Report 18685904 (Version 1)
Quarter: 2020Q4

REPORT INFORMATION
  Report Type: Spontaneous
  Country: NL (occurrence: NL)
  Receive Date: 20201231
  Receipt Date: 20201231
  Transmission Date: 20210114
  Serious: Yes (Other)
  Sender: FDA-Public Use
  Company Number: NL-AUROBINDO-AUR-APL-2020-063615

PATIENT
  Age: 65 Year
  Sex: Female
  Weight: 65 kg

DRUGS (1)
  1. METOPROLOL 50MG  PROLONGED-RELEASE TABLET [Suspect]
     Active Substance: METOPROLOL
     Indication: PALPITATIONS
     Dosage: TABLET WITH CONTROLLED, 50 MG (MILLIGRAM)
     Route: 065
     Dates: start: 20201015

REACTIONS (5)
  - Chest discomfort [Not Recovered/Not Resolved]
  - Throat tightness [Not Recovered/Not Resolved]
  - Bradycardia [Not Recovered/Not Resolved]
  - Dizziness [Not Recovered/Not Resolved]
  - Gastrointestinal disorder [Not Recovered/Not Resolved]

NARRATIVE: CASE EVENT DATE: 20201015
